FAERS Safety Report 8370407-9 (Version None)
Quarter: 2012Q2

REPORT INFORMATION
  Report Type: 
  Country: None (occurrence: None)
  Receive Date: 20120518
  Receipt Date: 20120508
  Transmission Date: 20120825
  Serious: Yes (Death, Hospitalization)
  Sender: FDA-Public Use
  Company Number: NL-JNJFOC-20091203972

PATIENT
  Sex: Male
  Weight: 78.6 kg

DRUGS (5)
  1. VORICONAZOLE [Suspect]
     Indication: ASPERGILLOSIS
     Dates: start: 20090101, end: 20090101
  2. REMICADE [Suspect]
     Indication: CROHN'S DISEASE
     Route: 042
     Dates: start: 20080916
  3. POSACONAZOLE [Suspect]
     Indication: ASPERGILLOSIS
     Dates: start: 20090101, end: 20090101
  4. ESOMEPRAZOLE MAGNESIUM [Concomitant]
  5. BUDESONIDE [Concomitant]

REACTIONS (12)
  - BRONCHOPULMONARY ASPERGILLOSIS [None]
  - HAEMOGLOBIN DECREASED [None]
  - PSEUDOMONAS INFECTION [None]
  - ASPERGILLOSIS [None]
  - CROHN'S DISEASE [None]
  - BRONCHIOLITIS [None]
  - ESCHERICHIA INFECTION [None]
  - LUNG ABSCESS [None]
  - HALLUCINATION [None]
  - RIB FRACTURE [None]
  - OEDEMA [None]
  - HEPATIC FUNCTION ABNORMAL [None]
